FAERS Safety Report 19330294 (Version 2)
Quarter: 2021Q3

REPORT INFORMATION
  Report Type: Spontaneous
  Country: ES (occurrence: ES)
  Receive Date: 20210528
  Receipt Date: 20210715
  Transmission Date: 20211014
  Serious: Yes (Other)
  Sender: FDA-Public Use
  Company Number: ES-ASTRAZENECA-2021A438560

PATIENT
  Age: 74 Year
  Sex: Male

DRUGS (4)
  1. DAPAGLIFLOZIN. [Concomitant]
     Active Substance: DAPAGLIFLOZIN
  2. XIGDUO XR [Suspect]
     Active Substance: DAPAGLIFLOZIN PROPANEDIOL\METFORMIN HYDROCHLORIDE
     Indication: DIABETES MELLITUS
     Dosage: DAILY DOSE: UNKNOWN
     Route: 048
     Dates: start: 2015, end: 20210507
  3. METFORMIN [Concomitant]
     Active Substance: METFORMIN HYDROCHLORIDE
  4. AMARYL [Concomitant]
     Active Substance: GLIMEPIRIDE
     Indication: DIABETES MELLITUS
     Dosage: UNKNOWN
     Route: 065
     Dates: start: 2015

REACTIONS (4)
  - Ischaemia [Unknown]
  - Pain in extremity [Not Recovered/Not Resolved]
  - Postoperative wound infection [Unknown]
  - Necrosis [Unknown]

NARRATIVE: CASE EVENT DATE: 2021
